FAERS Safety Report 25368900 (Version 4)
Quarter: 2025Q3

REPORT INFORMATION
  Report Type: Report from Study
  Country: US (occurrence: US)
  Receive Date: 20250528
  Receipt Date: 20250927
  Transmission Date: 20251021
  Serious: Yes (Hospitalization, Other)
  Sender: ABBVIE
  Company Number: US-ABBVIE-6298801

PATIENT
  Age: 64 Year
  Sex: Female
  Weight: 63.502 kg

DRUGS (3)
  1. RINVOQ [Suspect]
     Active Substance: UPADACITINIB
     Indication: Rheumatoid arthritis
     Dosage: FORM STRENGTH: 15 MILLIGRAM
     Route: 048
     Dates: start: 20230102
  2. RINVOQ [Suspect]
     Active Substance: UPADACITINIB
     Indication: Rheumatoid arthritis
     Route: 048
  3. RINVOQ [Suspect]
     Active Substance: UPADACITINIB
     Indication: Rheumatoid arthritis
     Dosage: FORM STRENGTH: 15 MILLIGRAM
     Route: 048
     Dates: start: 20240423, end: 20250901

REACTIONS (7)
  - Escherichia infection [Recovered/Resolved]
  - Gait disturbance [Recovering/Resolving]
  - Discomfort [Recovered/Resolved]
  - Post procedural complication [Not Recovered/Not Resolved]
  - Back pain [Not Recovered/Not Resolved]
  - Blood cholesterol increased [Not Recovered/Not Resolved]
  - Post procedural discharge [Not Recovered/Not Resolved]

NARRATIVE: CASE EVENT DATE: 20240101
